FAERS Safety Report 17953264 (Version 1)
Quarter: 2020Q2

REPORT INFORMATION
  Report Type: Spontaneous
  Country: CN (occurrence: CN)
  Receive Date: 20200627
  Receipt Date: 20200627
  Transmission Date: 20200714
  Serious: Yes (Other)
  Sender: FDA-Public Use
  Company Number: NVSC2020CN180127

PATIENT
  Age: 26 Year
  Sex: Male

DRUGS (6)
  1. ACTINOMYCIN D [Suspect]
     Active Substance: DACTINOMYCIN
     Indication: CHORIOCARCINOMA
     Dosage: 0.5 MG, Q12H (DAY 1 AND 2)
     Route: 065
  2. VINCRISTINE [Suspect]
     Active Substance: VINCRISTINE
     Indication: CHORIOCARCINOMA
     Dosage: 1 MG/M2 (DAY 8, EVERY 2 WEEKS)
     Route: 065
  3. METHOTREXATE. [Suspect]
     Active Substance: METHOTREXATE
     Indication: CHORIOCARCINOMA
     Dosage: 100 MG/M2 THE 200 MG/M2 OVER Q12H
     Route: 065
  4. CYCLOPHOSPHAMIDE. [Suspect]
     Active Substance: CYCLOPHOSPHAMIDE
     Indication: CHORIOCARCINOMA
     Dosage: 600 MG/M2 (DAY 8, EVERY 2 WEEKS)
     Route: 065
  5. LEUCOVORIN. [Suspect]
     Active Substance: LEUCOVORIN
     Indication: CHORIOCARCINOMA
     Dosage: 15 MG, QID
     Route: 065
  6. ETOPOSIDE. [Suspect]
     Active Substance: ETOPOSIDE
     Indication: CHORIOCARCINOMA
     Dosage: 100 MG/M2, Q12H (DAY 1 AND 2)
     Route: 065

REACTIONS (4)
  - Bone marrow failure [Unknown]
  - Malignant neoplasm progression [Unknown]
  - Vomiting [Unknown]
  - Choriocarcinoma [Unknown]
